FAERS Safety Report 19376087 (Version 1)
Quarter: 2021Q2

REPORT INFORMATION
  Report Type: Spontaneous
  Country: US (occurrence: US)
  Receive Date: 20210604
  Receipt Date: 20210604
  Transmission Date: 20210717
  Serious: No
  Sender: FDA-Public Use
  Company Number: US-IGSA-BIG0014672

PATIENT
  Age: 19 Year
  Sex: Female
  Weight: 40.37 kg

DRUGS (15)
  1. SENNA ACUTIFOLIA [Concomitant]
     Dosage: UNK
     Route: 048
  2. ERYTHROMYCIN ETHYL SUCCINATE [ERYTHROMYCIN ETHYLSUCCINATE] [Concomitant]
     Dosage: 200 MILLIGRAM, TID
     Route: 048
  3. SODIUM CITRATE. [Concomitant]
     Active Substance: SODIUM CITRATE
  4. ERYTHROMYCIN. [Concomitant]
     Active Substance: ERYTHROMYCIN
  5. DIAZEPAM RECTUBES [Concomitant]
     Dosage: 10 MILLIGRAM, PRN
     Route: 050
  6. LAMOTRIGINE. [Concomitant]
     Active Substance: LAMOTRIGINE
     Dosage: 25 MILLIGRAM, TID
     Route: 048
  7. ESOMEPRAZOLE. [Concomitant]
     Active Substance: ESOMEPRAZOLE MAGNESIUM
     Dosage: 40 MILLIGRAM, BID
     Route: 048
  8. GAMUNEX?C [Suspect]
     Active Substance: HUMAN IMMUNOGLOBULIN G
     Indication: IMMUNODEFICIENCY COMMON VARIABLE
     Dosage: 30 GRAM, Q.4WK.
     Route: 042
     Dates: start: 20210521
  9. ALBUTEROL HFA [Concomitant]
     Active Substance: ALBUTEROL SULFATE
     Dosage: UNK UNK, PRN
  10. ADVAIR HFA [Concomitant]
     Active Substance: FLUTICASONE PROPIONATE\SALMETEROL XINAFOATE
     Dosage: 2 UNK, BID
  11. NEXIUM CONTROL [Concomitant]
     Active Substance: ESOMEPRAZOLE MAGNESIUM
  12. GAMUNEX?C [Suspect]
     Active Substance: HUMAN IMMUNOGLOBULIN G
     Dosage: UNK
     Dates: start: 2016
  13. VITAMIN D NOS [Concomitant]
     Active Substance: VITAMIN D NOS
  14. TOPIRAMATE. [Concomitant]
     Active Substance: TOPIRAMATE
     Dosage: 100 MILLIGRAM, BID
     Route: 048
  15. ERGOCALCIFEROL. [Concomitant]
     Active Substance: ERGOCALCIFEROL
     Dosage: 0.8 MILLILITER, QD
     Route: 048

REACTIONS (1)
  - Urticaria [Recovered/Resolved]

NARRATIVE: CASE EVENT DATE: 20210521
